FAERS Safety Report 22036702 (Version 1)
Quarter: 2023Q1

REPORT INFORMATION
  Report Type: Spontaneous
  Country: GB (occurrence: GB)
  Receive Date: 20230225
  Receipt Date: 20230225
  Transmission Date: 20230418
  Serious: Yes (Other)
  Sender: FDA-Public Use
  Company Number: GB-MHRA-TPP10600120C1964064YC1675245672926

PATIENT
  Age: 61 Year
  Sex: Male
  Weight: 90 kg

DRUGS (9)
  1. AMOXICILLIN [Suspect]
     Active Substance: AMOXICILLIN
     Indication: Ill-defined disorder
     Dosage: UNK
     Route: 065
     Dates: start: 20230131
  2. AMOXICILLIN [Suspect]
     Active Substance: AMOXICILLIN
     Dosage: 1 DOSAGE FORM, 3 TIMES A DAY
     Route: 065
     Dates: start: 20230130
  3. AMOXICILLIN [Concomitant]
     Active Substance: AMOXICILLIN
     Indication: Ill-defined disorder
     Dosage: 1 DOSAGE FORM, 3 TIMES A DAY
     Route: 065
     Dates: start: 20230130
  4. CETIRIZINE [Concomitant]
     Active Substance: CETIRIZINE HYDROCHLORIDE
     Indication: Ill-defined disorder
     Dosage: 1 DOSAGE FORM, ONCE A DAY (TAKE ONE TABLET ONCE A DAY FOR ALLERGY)
     Route: 065
     Dates: start: 20230131
  5. CETIRIZINE [Concomitant]
     Active Substance: CETIRIZINE HYDROCHLORIDE
     Indication: Hypersensitivity
  6. DOXYCYCLINE [Concomitant]
     Active Substance: DOXYCYCLINE
     Indication: Ill-defined disorder
     Dosage: AS A SINGLE DOSE ON THE FIRST...
     Route: 065
     Dates: start: 20230131
  7. MOMETASONE [Concomitant]
     Active Substance: MOMETASONE
     Indication: Ill-defined disorder
     Dosage: ADULTS AND CHILDREN } 12 YEARS;  USE TWO SPRAYS...
     Route: 065
     Dates: start: 20221124
  8. MOMETASONE [Concomitant]
     Active Substance: MOMETASONE
     Dosage: ADULTS AND CHILDREN } 12 YEARS; SPRAYS...
     Dates: start: 20221124, end: 20221229
  9. RAMIPRIL [Concomitant]
     Active Substance: RAMIPRIL
     Indication: Ill-defined disorder
     Dosage: TAKE ONE CAPSULE ONCE A DAY
     Route: 065
     Dates: start: 20220818

REACTIONS (3)
  - Erythema [Recovering/Resolving]
  - Feeling hot [Recovering/Resolving]
  - Rash pruritic [Recovering/Resolving]

NARRATIVE: CASE EVENT DATE: 20230201
